FAERS Safety Report 7577196 (Version 2)
Quarter: 2013Q1

REPORT INFORMATION
  Report Type: Spontaneous
  Country: US (occurrence: US)
  Receive Date: 20100909
  Receipt Date: 20130329
  Transmission Date: 20140127
  Serious: Yes (Hospitalization)
  Sender: FDA-Public Use
  Company Number: US-BIOGENIDEC-2010BI029974

PATIENT
  Age: 74 Year
  Sex: Female
  Weight: 40 kg

DRUGS (3)
  1. AVONEX [Suspect]
     Indication: MULTIPLE SCLEROSIS
     Route: 030
     Dates: start: 20090403
  2. LISINOPRIL [Concomitant]
     Indication: POSTOPERATIVE CARE
     Dates: start: 201007
  3. PLAVIX [Concomitant]
     Indication: POSTOPERATIVE CARE
     Dates: start: 201007

REACTIONS (5)
  - Gait disturbance [Recovered/Resolved]
  - Procedural pain [Recovered/Resolved]
  - Incontinence [Not Recovered/Not Resolved]
  - Eye infection [Recovered/Resolved]
  - Eye pain [Recovered/Resolved]
